FAERS Safety Report 9785620 (Version 2)
Quarter: 2014Q1

REPORT INFORMATION
  Report Type: Report from Study
  Country: NL (occurrence: NL)
  Receive Date: 20131227
  Receipt Date: 20140320
  Transmission Date: 20141002
  Serious: Yes (Other)
  Sender: FDA-Public Use
  Company Number: NL-CELGENEUS-114-20785-13122853

PATIENT
  Age: 77 Year
  Sex: Male
  Weight: 88 kg

DRUGS (8)
  1. THALIDOMIDE [Suspect]
     Indication: PLASMA CELL MYELOMA
     Route: 048
     Dates: start: 20111103
  2. THALIDOMIDE [Suspect]
     Route: 048
     Dates: start: 20130918
  3. ASCAL [Suspect]
     Indication: PROPHYLAXIS
     Route: 048
     Dates: start: 20130918
  4. OMEPRAZOLE [Suspect]
     Indication: PROPHYLAXIS
     Route: 048
     Dates: start: 20130918
  5. MELPHALAN [Suspect]
     Indication: PLASMA CELL MYELOMA
     Route: 065
     Dates: start: 201101
  6. MELPHALAN [Suspect]
     Route: 048
     Dates: end: 201109
  7. PREDNISONE [Suspect]
     Indication: PLASMA CELL MYELOMA
     Route: 048
     Dates: start: 2011
  8. PREDNISONE [Suspect]
     Route: 048
     Dates: end: 201109

REACTIONS (1)
  - Basal cell carcinoma [Recovered/Resolved]
